FAERS Safety Report 8195786 (Version 2)
Quarter: 2013Q2

REPORT INFORMATION
  Report Type: Report from Study
  Country: MX (occurrence: MX)
  Receive Date: 20111024
  Receipt Date: 20130619
  Transmission Date: 20140414
  Serious: Yes (Other)
  Sender: FDA-Public Use
  Company Number: PHHY2011MX91529

PATIENT
  Age: 59 Year
  Sex: Female

DRUGS (1)
  1. DIOVAN [Suspect]
     Indication: HYPERTENSION
     Dosage: 1 TABLET (160 MG) PER DAY
     Route: 048
     Dates: start: 20110720

REACTIONS (2)
  - Blood triglycerides increased [Not Recovered/Not Resolved]
  - Blood triglycerides abnormal [Not Recovered/Not Resolved]
